FAERS Safety Report 16796801 (Version 1)
Quarter: 2019Q3

REPORT INFORMATION
  Report Type: Report from Study
  Country: US (occurrence: US)
  Receive Date: 20190911
  Receipt Date: 20190911
  Transmission Date: 20191005
  Serious: Yes (Hospitalization)
  Sender: FDA-Public Use
  Company Number: US-ACTELION-A-NJ2019-192297

PATIENT
  Age: 49 Year
  Sex: Female
  Weight: 77.1 kg

DRUGS (6)
  1. TADALAFIL. [Concomitant]
     Active Substance: TADALAFIL
  2. OPSUMIT [Suspect]
     Active Substance: MACITENTAN
     Indication: PULMONARY ARTERIAL HYPERTENSION
     Dosage: 10 MG, QD
     Route: 048
     Dates: start: 201905
  3. FENTANYL. [Suspect]
     Active Substance: FENTANYL
     Indication: PRODUCT USED FOR UNKNOWN INDICATION
     Route: 065
  4. LETAIRIS [Concomitant]
     Active Substance: AMBRISENTAN
  5. TYVASO [Concomitant]
     Active Substance: TREPROSTINIL
  6. OXYGEN. [Concomitant]
     Active Substance: OXYGEN

REACTIONS (14)
  - Hospitalisation [Unknown]
  - Fluid retention [Unknown]
  - Arthralgia [Unknown]
  - Nausea [Unknown]
  - Candida infection [Unknown]
  - Myalgia [Unknown]
  - Abdominal pain [Unknown]
  - Syncope [Not Recovered/Not Resolved]
  - Condition aggravated [Unknown]
  - Insomnia [Unknown]
  - Fatigue [Unknown]
  - Product dose omission [Unknown]
  - Pain in jaw [Unknown]
  - Catheterisation cardiac [Unknown]

NARRATIVE: CASE EVENT DATE: 201905
